FAERS Safety Report 9579995 (Version 1)
Quarter: 2013Q3

REPORT INFORMATION
  Report Type: Spontaneous
  Country: US (occurrence: None)
  Receive Date: 20130916
  Receipt Date: 20130916
  Transmission Date: 20140515
  Serious: Yes (Other)
  Sender: FDA-Public Use
  Company Number: JPI-P-023322

PATIENT
  Age: 49 Year
  Sex: Female

DRUGS (8)
  1. XYREM [Suspect]
     Indication: FIBROMYALGIA
     Route: 048
     Dates: start: 20120720
  2. LEVOTHYROXINE [Concomitant]
  3. FAMOTIDINE [Concomitant]
  4. HYDROCODONE/APAP [Concomitant]
  5. MULTIVITAMINS [Concomitant]
  6. ADRENAL [Concomitant]
  7. HYDROWUINONE/TRETINOIN [Concomitant]
  8. VILAZODONE [Concomitant]

REACTIONS (15)
  - Hypertension [None]
  - Condition aggravated [None]
  - Poor quality sleep [None]
  - Chills [None]
  - Swelling face [None]
  - Defaecation urgency [None]
  - Lip dry [None]
  - Fatigue [None]
  - Insomnia [None]
  - Feeling hot [None]
  - Dysgeusia [None]
  - Decreased appetite [None]
  - Micturition urgency [None]
  - Urinary incontinence [None]
  - Peripheral coldness [None]
